FAERS Safety Report 7705544-2 (Version None)
Quarter: 2011Q3

REPORT INFORMATION
  Report Type: 
  Country: None (occurrence: None)
  Receive Date: 20110823
  Receipt Date: 20110823
  Transmission Date: 20111222
  Serious: Yes (Life-Threatening, Hospitalization)
  Sender: FDA-Public Use
  Company Number: None

PATIENT
  Age: 69 Year
  Sex: Male
  Weight: 164.5 kg

DRUGS (1)
  1. PRADAXA [Suspect]
     Indication: ATRIAL FIBRILLATION
     Dosage: 150 MG DAILY ORAL CHRONIC MEDICATION
     Route: 048

REACTIONS (3)
  - PNEUMATOSIS INTESTINALIS [None]
  - VOLVULUS OF SMALL BOWEL [None]
  - HAEMORRHAGE [None]
